FAERS Safety Report 8849102 (Version 2)
Quarter: 2013Q1

REPORT INFORMATION
  Report Type: Spontaneous
  Country: US (occurrence: US)
  Receive Date: 20121019
  Receipt Date: 20130123
  Transmission Date: 20140127
  Serious: Yes (Hospitalization)
  Sender: FDA-Public Use
  Company Number: US-BAYER-2012-107800

PATIENT
  Age: 29 Year
  Sex: Female
  Weight: 85.26 kg

DRUGS (16)
  1. YAZ [Suspect]
     Dosage: UNK
  2. YASMIN [Suspect]
     Dosage: UNK
  3. OCELLA [Suspect]
     Indication: POLYCYSTIC OVARIES
     Dosage: UNK
     Dates: start: 20081209, end: 200901
  4. OCELLA [Suspect]
     Indication: POLYCYSTIC OVARIES
     Dosage: UNK
     Dates: start: 20091216, end: 201010
  5. METOPROLOL [Concomitant]
     Dosage: 50 MG, BID
     Route: 048
     Dates: start: 20101012
  6. CARBAMAZEPINE [Concomitant]
     Dosage: 100 MG, UNK
     Route: 048
     Dates: start: 20101012
  7. LAMICTAL [Concomitant]
     Dosage: 200 MG, UNK
     Route: 048
     Dates: start: 20101012
  8. VICODIN [Concomitant]
     Indication: PAIN
     Dosage: 5 MG, PRN
     Route: 048
     Dates: start: 20101012
  9. VICODIN [Concomitant]
     Indication: PAIN
     Dosage: 500 MG, PRN
     Route: 048
     Dates: start: 20101012
  10. METFORMIN [Concomitant]
     Dosage: 500 MG, BID
     Route: 048
     Dates: start: 20101012
  11. ACARBOSE [Concomitant]
     Dosage: TO MG TID
     Route: 048
     Dates: start: 20101012
  12. OMEPRAZOLE [Concomitant]
     Dosage: 20 MG, BID
     Route: 048
     Dates: start: 20101012
  13. XANAX [Concomitant]
     Indication: ANXIETY
     Dosage: 0.25 MG, PRN
     Route: 048
  14. TEGRETOL [Concomitant]
  15. PERCOCET [Concomitant]
  16. DEXAMETHASONE [Concomitant]

REACTIONS (11)
  - Cerebrovascular accident [None]
  - Injury [None]
  - Emotional distress [None]
  - Fear of death [None]
  - Nervousness [None]
  - Depression [None]
  - Migraine [None]
  - Dizziness [None]
  - Immobile [None]
  - Syncope [None]
  - Off label use [None]
